FAERS Safety Report 8116764-X (Version None)
Quarter: 2012Q1

REPORT INFORMATION
  Report Type: 
  Country: None (occurrence: None)
  Receive Date: 20120206
  Receipt Date: 20120127
  Transmission Date: 20120608
  Serious: Yes (Life-Threatening, Hospitalization)
  Sender: FDA-Public Use
  Company Number: US-BAYER-2011-054399

PATIENT
  Age: 23 Year
  Sex: Female
  Weight: 68.027 kg

DRUGS (2)
  1. YASMIN [Suspect]
     Indication: CONTRACEPTION
     Dosage: UNK
     Dates: start: 20080101, end: 20090101
  2. NAPROXEN [Concomitant]
     Dosage: 500 MG, BID WITH FOOD
     Route: 048

REACTIONS (8)
  - FATIGUE [None]
  - ASTHENIA [None]
  - DEEP VEIN THROMBOSIS [None]
  - DEFORMITY [None]
  - PAIN [None]
  - ANHEDONIA [None]
  - VENOUS INSUFFICIENCY [None]
  - ANXIETY [None]
